FAERS Safety Report 9638166 (Version 4)
Quarter: 2014Q1

REPORT INFORMATION
  Report Type: Spontaneous
  Country: US (occurrence: US)
  Receive Date: 20131022
  Receipt Date: 20140110
  Transmission Date: 20141002
  Serious: Yes (Other)
  Sender: FDA-Public Use
  Company Number: US-PFIZER INC-2013299286

PATIENT
  Age: 60 Year
  Sex: Female

DRUGS (5)
  1. XELJANZ [Suspect]
     Indication: RHEUMATOID ARTHRITIS
     Dosage: 5 MG, 1 TAB Q 12 HRS
     Route: 048
     Dates: start: 20130312
  2. METHOTREXATE [Concomitant]
     Dosage: 2.5 MG, UNK
  3. METHOTREXATE [Concomitant]
     Dosage: 20 MG, WEEKLY
     Route: 048
  4. FOLIC ACID [Concomitant]
     Dosage: 1 MG, DAILY
  5. ALENDRONATE [Concomitant]
     Dosage: 70 MG, WEEKLY
     Route: 048

REACTIONS (4)
  - Rheumatoid arthritis [Recovered/Resolved]
  - Nasopharyngitis [Unknown]
  - Blood glucose increased [Unknown]
  - Drug ineffective [Unknown]
